FAERS Safety Report 20643727 (Version 1)
Quarter: 2022Q1

REPORT INFORMATION
  Report Type: Spontaneous
  Country: US (occurrence: None)
  Receive Date: 20220326
  Receipt Date: 20220326
  Transmission Date: 20220423
  Serious: No
  Sender: FDA-Public Use
  Company Number: None

PATIENT
  Age: 56 Year
  Sex: Female
  Weight: 54 kg

DRUGS (13)
  1. OXYCODONE HYDROCHLORIDE [Suspect]
     Active Substance: OXYCODONE HYDROCHLORIDE
     Indication: Pancreatitis chronic
     Dosage: OTHER QUANTITY : 1 TABLET(S)?FREQUENCY : 3 TIMES A DAY?
     Route: 048
     Dates: start: 20220324
  2. OXYCODONE HYDROCHLORIDE [Suspect]
     Active Substance: OXYCODONE HYDROCHLORIDE
     Indication: Intervertebral disc degeneration
  3. ONDANSETRON [Concomitant]
     Active Substance: ONDANSETRON
  4. FAMOTIDINE [Concomitant]
     Active Substance: FAMOTIDINE
  5. HYOSCYAMINE [Concomitant]
     Active Substance: HYOSCYAMINE
  6. ATORVASTATIN [Concomitant]
     Active Substance: ATORVASTATIN
  7. LORAZEPAM [Concomitant]
     Active Substance: LORAZEPAM
  8. LANSOPRAZOLE [Concomitant]
     Active Substance: LANSOPRAZOLE
  9. DOMPERIDONE [Concomitant]
     Active Substance: DOMPERIDONE
  10. METHYLATED [Concomitant]
  11. VITAMIN B COMPLEX [Concomitant]
     Active Substance: CYANOCOBALAMIN\DEXPANTHENOL\NIACINAMIDE\PYRIDOXINE HYDROCHLORIDE\RIBOFLAVIN 5^-PHOSPHATE SODIUM\THIA
  12. Multi-vitamin [Concomitant]
  13. VITAMIN D [Concomitant]
     Active Substance: VITAMIN D NOS

REACTIONS (5)
  - Product substitution issue [None]
  - Inadequate analgesia [None]
  - Agitation [None]
  - Hallucination, visual [None]
  - Suspected counterfeit product [None]

NARRATIVE: CASE EVENT DATE: 20220324
